FAERS Safety Report 10385386 (Version 1)
Quarter: 2014Q1

REPORT INFORMATION
  Report Type: Spontaneous
  Country: US (occurrence: None)
  Receive Date: 20140306
  Receipt Date: 20140306
  Transmission Date: 20141002
  Serious: Yes (Other)
  Sender: FDA-Public Use
  Company Number: 163-21880-13042617

PATIENT
  Age: 57 Year
  Sex: Male

DRUGS (11)
  1. REVLIMID (LENALIDOMIDE) (25 MILLIGRAM, CAPSULES) [Suspect]
     Indication: PLASMA CELL MYELOMA
     Dosage: 21 IN 21D
     Route: 048
     Dates: start: 20120119
  2. WARFARIN (WARFARIN) [Concomitant]
  3. DEXAMETHASONE (DEXAMETHASONE) [Concomitant]
  4. AZOPT [Concomitant]
  5. METFORMIN (METFORMIN) [Concomitant]
  6. PENICILLIN [Concomitant]
  7. CHLORHEXIDINE (CHLORHEXIDINE) [Concomitant]
  8. LEVEMIR (INSULIN DETEMIR) [Concomitant]
  9. METOPROLOL (METOPROLOL) [Suspect]
  10. FRAGMIN (HEPARIN-FRACTION, SODIUM SALT) [Concomitant]
  11. ASPIRIN (ACETYLSALICYLIC ACID) [Concomitant]

REACTIONS (1)
  - Atrial fibrillation [None]
